FAERS Safety Report 19094713 (Version 1)
Quarter: 2021Q2

REPORT INFORMATION
  Report Type: Spontaneous
  Country: JP (occurrence: JP)
  Receive Date: 20210405
  Receipt Date: 20210405
  Transmission Date: 20210717
  Serious: Yes (Death, Other)
  Sender: FDA-Public Use
  Company Number: JP-VALIDUS PHARMACEUTICALS LLC-JP-2021VAL000617

PATIENT
  Age: 86 Year
  Sex: Male

DRUGS (33)
  1. DELTYBA [Suspect]
     Active Substance: DELAMANID
     Indication: PULMONARY TUBERCULOSIS
     Dosage: 200 MG, QD
     Route: 048
     Dates: start: 20180607, end: 20180717
  2. FEBUXOSTAT. [Suspect]
     Active Substance: FEBUXOSTAT
     Indication: PRODUCT USED FOR UNKNOWN INDICATION
     Dosage: 20 MG, QD
     Route: 048
     Dates: end: 20180716
  3. BROTIZOLAM [Suspect]
     Active Substance: BROTIZOLAM
     Indication: PRODUCT USED FOR UNKNOWN INDICATION
     Dosage: 0.125 MG, QD
     Route: 048
     Dates: end: 20180716
  4. FUROSEMIDE. [Suspect]
     Active Substance: FUROSEMIDE
     Indication: PRODUCT USED FOR UNKNOWN INDICATION
     Dosage: 20 MG, QD
     Route: 042
     Dates: start: 20180607, end: 20180718
  5. LEVOFLOXACIN. [Suspect]
     Active Substance: LEVOFLOXACIN
     Indication: PULMONARY TUBERCULOSIS
     Dosage: 500 MG, QD
     Route: 048
     Dates: start: 20180320, end: 20180718
  6. SAMSCA [Suspect]
     Active Substance: TOLVAPTAN
     Indication: PRODUCT USED FOR UNKNOWN INDICATION
     Dosage: 3.725 MG, QD
     Route: 048
     Dates: start: 20180714, end: 20180716
  7. MECOBALAMIN [Suspect]
     Active Substance: METHYLCOBALAMIN
     Indication: PRODUCT USED FOR UNKNOWN INDICATION
     Dosage: 1 MG, QD
     Route: 048
     Dates: end: 20180716
  8. BISOPROLOL FUMARATE. [Suspect]
     Active Substance: BISOPROLOL FUMARATE
     Indication: PRODUCT USED FOR UNKNOWN INDICATION
     Dosage: UNK
     Route: 065
  9. PYRAZINAMIDE. [Suspect]
     Active Substance: PYRAZINAMIDE
     Dosage: 1 G, QD
     Dates: start: 20180602, end: 20180618
  10. RIFAMPICIN [Suspect]
     Active Substance: RIFAMPIN
     Indication: PULMONARY TUBERCULOSIS
     Dosage: 450 MG, QD
     Route: 048
     Dates: start: 20180309, end: 20180527
  11. DOPAMINE HYDROCHLORIDE. [Suspect]
     Active Substance: DOPAMINE HYDROCHLORIDE
     Indication: PRODUCT USED FOR UNKNOWN INDICATION
     Dosage: 360 MG, QD
     Route: 042
     Dates: start: 20180717, end: 20180718
  12. CYCLOSERINE. [Suspect]
     Active Substance: CYCLOSERINE
     Indication: PULMONARY TUBERCULOSIS
     Dosage: 500 MG, QD
     Route: 048
     Dates: start: 20180528, end: 20180627
  13. AMINOSALICYLATE CALCIUM [Suspect]
     Active Substance: AMINOSALICYLATE CALCIUM
     Indication: PULMONARY TUBERCULOSIS
     Dosage: 10 MG, QD
     Route: 048
     Dates: start: 20180528, end: 20180601
  14. DOBUTAMINE HYDROCHLORIDE. [Suspect]
     Active Substance: DOBUTAMINE HYDROCHLORIDE
     Dosage: 648 UNK
     Route: 042
     Dates: start: 20170717, end: 20180718
  15. ISONIAZID. [Suspect]
     Active Substance: ISONIAZID
     Dosage: 20 MG, QD
     Route: 048
     Dates: start: 20180309, end: 20180319
  16. CEFTAZIDIME. [Suspect]
     Active Substance: CEFTAZIDIME
     Indication: PRODUCT USED FOR UNKNOWN INDICATION
     Dosage: 2 G, QD
     Route: 042
     Dates: start: 20180612, end: 20180625
  17. ENVIOMYCIN SULFATE [Suspect]
     Active Substance: ENVIOMYCIN SULFATE
     Indication: PULMONARY TUBERCULOSIS
     Dosage: 1 G, QD
     Route: 030
     Dates: start: 20180530, end: 20180718
  18. POTASSIUM CANRENOATE [Suspect]
     Active Substance: CANRENOATE POTASSIUM
     Indication: PRODUCT USED FOR UNKNOWN INDICATION
     Dosage: 100 MG, QD
     Route: 042
     Dates: start: 20180531, end: 20180607
  19. DOBUTAMINE HYDROCHLORIDE. [Suspect]
     Active Substance: DOBUTAMINE HYDROCHLORIDE
     Indication: PRODUCT USED FOR UNKNOWN INDICATION
     Dosage: 216 MG, QD
     Route: 042
     Dates: start: 20170717, end: 20180718
  20. LINEZOLID. [Suspect]
     Active Substance: LINEZOLID
     Indication: PULMONARY TUBERCULOSIS
     Dosage: 1.2 G, QD
     Route: 042
     Dates: start: 20180626, end: 20180717
  21. LANSOPRAZOLE. [Suspect]
     Active Substance: LANSOPRAZOLE
     Indication: PRODUCT USED FOR UNKNOWN INDICATION
     Dosage: 15 MG, QD
     Route: 048
     Dates: end: 20180716
  22. POLAPREZINC [Suspect]
     Active Substance: POLAPREZINC
     Indication: PRODUCT USED FOR UNKNOWN INDICATION
     Dosage: 150 MG, QD
     Route: 048
     Dates: end: 20180716
  23. FAMOTIDINE. [Suspect]
     Active Substance: FAMOTIDINE
     Indication: PRODUCT USED FOR UNKNOWN INDICATION
     Dosage: 40 MG, QD
     Route: 042
     Dates: start: 20180528, end: 20180607
  24. METOCLOPRAMIDE. [Suspect]
     Active Substance: METOCLOPRAMIDE
     Indication: PRODUCT USED FOR UNKNOWN INDICATION
     Dosage: 10 MG, QD
     Route: 042
     Dates: start: 20180709, end: 20180718
  25. PYRAZINAMIDE. [Suspect]
     Active Substance: PYRAZINAMIDE
     Indication: PULMONARY TUBERCULOSIS
     Dosage: 1 G, QD
     Route: 048
     Dates: start: 20180309, end: 20180319
  26. DOPAMINE HYDROCHLORIDE. [Suspect]
     Active Substance: DOPAMINE HYDROCHLORIDE
     Dosage: 720 UNK
     Route: 042
     Dates: start: 20180717, end: 20180718
  27. PREDNISOLONE. [Suspect]
     Active Substance: PREDNISOLONE
     Indication: PRODUCT USED FOR UNKNOWN INDICATION
     Dosage: 20 MG, QD
     Route: 042
     Dates: start: 20180615, end: 20180718
  28. FOLIC ACID. [Suspect]
     Active Substance: FOLIC ACID
     Indication: PRODUCT USED FOR UNKNOWN INDICATION
     Dosage: 10 MG, QD
     Route: 048
     Dates: end: 20180716
  29. ETHAMBUTOL HYDROCHLORIDE. [Suspect]
     Active Substance: ETHAMBUTOL HYDROCHLORIDE
     Indication: PULMONARY TUBERCULOSIS
     Dosage: 750 MG, QD
     Route: 065
     Dates: start: 20180320, end: 20180527
  30. METOCLOPRAMIDE. [Suspect]
     Active Substance: METOCLOPRAMIDE
     Dosage: 10 MG, QD
     Route: 042
     Dates: start: 20180601, end: 20180607
  31. ISONIAZID. [Suspect]
     Active Substance: ISONIAZID
     Indication: PULMONARY TUBERCULOSIS
     Dosage: 200 MG, QD
     Route: 048
     Dates: start: 20180409, end: 20180527
  32. STREPTOMYCIN SULFATE. [Suspect]
     Active Substance: STREPTOMYCIN SULFATE
     Indication: PULMONARY TUBERCULOSIS
     Dosage: 0.75 MG, QD
     Route: 065
     Dates: start: 20180320, end: 20180527
  33. PIPERACILLIN AND TAZOBACTAM [Suspect]
     Active Substance: PIPERACILLIN SODIUM\TAZOBACTAM SODIUM
     Indication: PRODUCT USED FOR UNKNOWN INDICATION
     Dosage: 13.5 MG, QD
     Route: 042
     Dates: start: 20180606, end: 20180611

REACTIONS (3)
  - Haematuria [Fatal]
  - Pancytopenia [Fatal]
  - Adverse event [Unknown]

NARRATIVE: CASE EVENT DATE: 20180717
